FAERS Safety Report 17266643 (Version 1)
Quarter: 2020Q1

REPORT INFORMATION
  Report Type: Spontaneous
  Country: US (occurrence: US)
  Receive Date: 20200113
  Receipt Date: 20200113
  Transmission Date: 20200409
  Serious: No
  Sender: FDA-Public Use
  Company Number: None

PATIENT
  Age: 38 Year
  Sex: Female
  Weight: 101.25 kg

DRUGS (10)
  1. STOOL SOFTENER (DOCUSATE) [Concomitant]
     Active Substance: DOCUSATE
  2. EMGALITY [Suspect]
     Active Substance: GALCANEZUMAB-GNLM
     Indication: MIGRAINE
     Dates: start: 20191031, end: 20200113
  3. CYMBALTA [Concomitant]
     Active Substance: DULOXETINE HYDROCHLORIDE
  4. VITAMIN B12 [Concomitant]
     Active Substance: CYANOCOBALAMIN
  5. MAGNESIUM [Concomitant]
     Active Substance: MAGNESIUM
  6. CALCIUM [Concomitant]
     Active Substance: CALCIUM
  7. NAIL/HAIR VITAMIN [Concomitant]
  8. EVENING PRIMROSE [Concomitant]
  9. MULTI WOMEN VITAMIN [Concomitant]
  10. PROBIOTIC [Concomitant]
     Active Substance: PROBIOTICS NOS

REACTIONS (14)
  - Weight increased [None]
  - Fatigue [None]
  - Night sweats [None]
  - Anxiety [None]
  - Abnormal dreams [None]
  - Abdominal distension [None]
  - Constipation [None]
  - Dry mouth [None]
  - Irritability [None]
  - Feeling abnormal [None]
  - Sexual inhibition [None]
  - Alopecia [None]
  - Pain in jaw [None]
  - Acne [None]

NARRATIVE: CASE EVENT DATE: 20191216
